FAERS Safety Report 21087139 (Version 1)
Quarter: 2022Q3

REPORT INFORMATION
  Report Type: Spontaneous
  Country: US (occurrence: US)
  Receive Date: 20220715
  Receipt Date: 20220715
  Transmission Date: 20221027
  Serious: Yes (Hospitalization, Other)
  Sender: FDA-Public Use
  Company Number: US-ADVANZ PHARMA-202207004084

PATIENT

DRUGS (1)
  1. CLONIDINE [Suspect]
     Active Substance: CLONIDINE
     Indication: Attention deficit hyperactivity disorder
     Dosage: UNK,  INGESTING 30 PILLS OF CLONIDINE

REACTIONS (7)
  - Suicide attempt [Recovering/Resolving]
  - Acute myocardial infarction [Recovering/Resolving]
  - Cardiac failure acute [Recovering/Resolving]
  - Congestive cardiomyopathy [Recovering/Resolving]
  - Arteriospasm coronary [Recovering/Resolving]
  - Left ventricular hypertrophy [Recovering/Resolving]
  - Intentional overdose [Recovering/Resolving]
